FAERS Safety Report 14806558 (Version 1)
Quarter: 2018Q2

REPORT INFORMATION
  Report Type: Spontaneous
  Country: FR (occurrence: FR)
  Receive Date: 20180425
  Receipt Date: 20180425
  Transmission Date: 20180711
  Serious: Yes (Hospitalization)
  Sender: FDA-Public Use
  Company Number: FR-PFIZER INC-2018162764

PATIENT
  Age: 77 Year
  Sex: Female
  Weight: 54 kg

DRUGS (1)
  1. ZYVOXID [Suspect]
     Active Substance: LINEZOLID
     Indication: BRONCHITIS
     Dosage: 2 DF, 1X/DAY
     Route: 048
     Dates: start: 20180212, end: 20180222

REACTIONS (4)
  - Anaemia [Not Recovered/Not Resolved]
  - Pallor [Not Recovered/Not Resolved]
  - Tachypnoea [Not Recovered/Not Resolved]
  - Product use issue [Unknown]

NARRATIVE: CASE EVENT DATE: 20180222
